FAERS Safety Report 7414107-8 (Version None)
Quarter: 2011Q2

REPORT INFORMATION
  Report Type: 
  Country: None (occurrence: None)
  Receive Date: 20110411
  Receipt Date: 20110411
  Transmission Date: 20111010
  Serious: No
  Sender: FDA-Public Use
  Company Number: None

PATIENT
  Age: 26 Year
  Sex: Female
  Weight: 74.8435 kg

DRUGS (1)
  1. DEPO-PROVERA [Suspect]
     Dosage: 150MG/ML ONCE IM
     Route: 030
     Dates: start: 20100610, end: 20100924

REACTIONS (11)
  - BONE DENSITY DECREASED [None]
  - DEPRESSION [None]
  - ACTIVITIES OF DAILY LIVING IMPAIRED [None]
  - WEIGHT INCREASED [None]
  - BREAST PAIN [None]
  - PAIN [None]
  - OVARIAN CYST [None]
  - ECONOMIC PROBLEM [None]
  - AMENORRHOEA [None]
  - SUICIDAL IDEATION [None]
  - HYPOTHYROIDISM [None]
